FAERS Safety Report 9928365 (Version 1)
Quarter: 2014Q1

REPORT INFORMATION
  Report Type: Spontaneous
  Country: US (occurrence: None)
  Receive Date: 20140224
  Receipt Date: 20140224
  Transmission Date: 20141002
  Serious: Yes (Hospitalization)
  Sender: FDA-Public Use
  Company Number: 2014P1001321

PATIENT
  Age: 55 Year
  Sex: Male

DRUGS (1)
  1. AMPHETAMINE [Suspect]

REACTIONS (10)
  - Fall [None]
  - Laceration [None]
  - Subdural haematoma [None]
  - Frustration [None]
  - Anger [None]
  - Agitation [None]
  - Delirium [None]
  - Somatic delusion [None]
  - Infection parasitic [None]
  - Tinea infection [None]
